FAERS Safety Report 8959506 (Version 1)
Quarter: 2012Q4

REPORT INFORMATION
  Report Type: 
  Country: FR (occurrence: FR)
  Receive Date: 20121212
  Receipt Date: 20121212
  Transmission Date: 20130627
  Serious: Yes (Other)
  Sender: FDA-Public Use
  Company Number: FR-009507513-1212FRA004006

PATIENT

DRUGS (2)
  1. EMEND [Suspect]
  2. YONDELIS [Interacting]

REACTIONS (1)
  - Neutropenia [Unknown]
